FAERS Safety Report 13821011 (Version 1)
Quarter: 2017Q3

REPORT INFORMATION
  Report Type: Spontaneous
  Country: US (occurrence: US)
  Receive Date: 20170801
  Receipt Date: 20170801
  Transmission Date: 20171127
  Serious: No
  Sender: FDA-Public Use
  Company Number: US-TEVA-780516ACC

PATIENT
  Sex: Male

DRUGS (1)
  1. ACTAVIS LORAZEPAM [Suspect]
     Active Substance: LORAZEPAM
     Indication: ANXIETY
     Dates: start: 2015

REACTIONS (5)
  - Product physical issue [Unknown]
  - Drug ineffective [Unknown]
  - Burning sensation [Unknown]
  - Feeling abnormal [Unknown]
  - Insomnia [Unknown]
